FAERS Safety Report 24144403 (Version 1)
Quarter: 2024Q3

REPORT INFORMATION
  Report Type: Report from Study
  Country: CA (occurrence: CA)
  Receive Date: 20240728
  Receipt Date: 20240728
  Transmission Date: 20241017
  Serious: Yes (Other)
  Sender: JOHNSON AND JOHNSON
  Company Number: CA-JNJFOC-20240228446

PATIENT
  Age: 47 Year
  Sex: Female
  Weight: 69 kg

DRUGS (1)
  1. REMICADE [Suspect]
     Active Substance: INFLIXIMAB
     Indication: Crohn^s disease
     Dosage: EXPIRY DATE REPORTED 01/NOV/2026
     Route: 041

REACTIONS (2)
  - Uterine leiomyoma [Recovered/Resolved]
  - Abdominal pain upper [Not Recovered/Not Resolved]
